FAERS Safety Report 9029384 (Version 1)
Quarter: 2013Q1

REPORT INFORMATION
  Report Type: Spontaneous
  Country: BR (occurrence: BR)
  Receive Date: 20130125
  Receipt Date: 20130125
  Transmission Date: 20140127
  Serious: Yes (Other)
  Sender: FDA-Public Use
  Company Number: PHHY2013BR006718

PATIENT
  Sex: Female

DRUGS (2)
  1. DIOVAN TRIPLE [Suspect]
     Dosage: 2 DF DAILY
  2. DIOVAN TRIPLE [Suspect]
     Dosage: 2 DF DAILY

REACTIONS (2)
  - Cerebrovascular accident [Recovering/Resolving]
  - Asthenia [Recovering/Resolving]
